FAERS Safety Report 4289895-2 (Version None)
Quarter: 2004Q1

REPORT INFORMATION
  Report Type: 
  Country: None (occurrence: None)
  Receive Date: 20040206
  Receipt Date: 20040122
  Transmission Date: 20041129
  Serious: Yes (Hospitalization, Other)
  Sender: FDA-Public Use
  Company Number: HQWYE456308DEC03

PATIENT
  Age: 69 Year
  Sex: Female

DRUGS (7)
  1. BISOPROLOL (BISOPROLOL, TABLET) [Suspect]
     Indication: ATRIAL FIBRILLATION
     Dosage: 1.25 MG 1X PER 1 DAY, ORAL;2.5 MG 1X PER 1 DAY, ORAL
     Route: 048
  2. BISOPROLOL (BISOPROLOL, TABLET) [Suspect]
     Indication: TACHYARRHYTHMIA
     Dosage: 1.25 MG 1X PER 1 DAY, ORAL;2.5 MG 1X PER 1 DAY, ORAL
     Route: 048
  3. AMIODARONE MERCK (AMIODARONE, ) [Suspect]
     Indication: ATRIAL FIBRILLATION
     Dosage: UNSPECIFIED DOSE, ORAL
     Route: 048
  4. AMIODARONE MERCK (AMIODARONE, ) [Suspect]
     Indication: TACHYARRHYTHMIA
     Dosage: UNSPECIFIED DOSE, ORAL
     Route: 048
  5. AMIODARONE MERCK (AMIODARONE, ) [Suspect]
     Dosage: 600 MG 1X PER 1 DAY, ORAL
     Route: 048
  6. BETA-ACETYLDIGOXIN (BETA-ACETYLDIGOXIN, ) [Suspect]
     Indication: ATRIAL FIBRILLATION
     Dosage: 0.1 MG 1X PER 1 DAY, ARTERIAL
  7. BETA-ACETYLDIGOXIN (BETA-ACETYLDIGOXIN, ) [Suspect]
     Indication: TACHYARRHYTHMIA
     Dosage: 0.1 MG 1X PER 1 DAY, ARTERIAL

REACTIONS (10)
  - AORTIC STENOSIS [None]
  - DRUG INTERACTION [None]
  - ELECTROCARDIOGRAM QT CORRECTED INTERVAL PROLONGED [None]
  - ELECTROCARDIOGRAM QT PROLONGED [None]
  - ELECTROCARDIOGRAM ST SEGMENT DEPRESSION [None]
  - ELECTROCARDIOGRAM T WAVE INVERSION [None]
  - HAEMOGLOBIN DECREASED [None]
  - HEART RATE INCREASED [None]
  - SINUS BRADYCARDIA [None]
  - TORSADE DE POINTES [None]
